FAERS Safety Report 10027913 (Version 2)
Quarter: 2014Q2

REPORT INFORMATION
  Report Type: Spontaneous
  Country: GB (occurrence: GB)
  Receive Date: 20140321
  Receipt Date: 20140407
  Transmission Date: 20141212
  Serious: Yes (Other)
  Sender: FDA-Public Use
  Company Number: GB-WATSON-2014-05059

PATIENT
  Age: 70 Year
  Sex: Female

DRUGS (2)
  1. ROPINIROLE (UNKNOWN) [Suspect]
     Indication: PRODUCT USED FOR UNKNOWN INDICATION
     Dosage: UNK
     Route: 065
  2. MADOPAR [Suspect]
     Indication: PARKINSON^S DISEASE
     Dosage: UNK
     Route: 065

REACTIONS (8)
  - Psychotic disorder [Unknown]
  - Dopamine dysregulation syndrome [Unknown]
  - Anxiety [Unknown]
  - Hallucination [Unknown]
  - Paranoia [Unknown]
  - Dementia [Unknown]
  - On and off phenomenon [Unknown]
  - Social problem [Unknown]
